FAERS Safety Report 9210458 (Version 3)
Quarter: 2013Q2

REPORT INFORMATION
  Report Type: Spontaneous
  Country: US (occurrence: US)
  Receive Date: 20130404
  Receipt Date: 20130516
  Transmission Date: 20140414
  Serious: Yes (Hospitalization, Other)
  Sender: FDA-Public Use
  Company Number: US-BAYER-2013-040034

PATIENT
  Age: 25 Year
  Sex: Female
  Weight: 81.6 kg

DRUGS (8)
  1. YAZ [Suspect]
     Dosage: UNK
     Dates: start: 2006, end: 2007
  2. YASMIN [Suspect]
     Dosage: UNK
     Dates: start: 2006, end: 2007
  3. OCELLA [Suspect]
     Dosage: UNK
     Dates: start: 2006, end: 2007
  4. ALBUTEROL [Concomitant]
     Dosage: UNK
     Dates: start: 20070620
  5. ALBUTEROL [Concomitant]
  6. HYDROCODONE [Concomitant]
     Dosage: 5/325MG
     Dates: start: 20070620
  7. SINGULAIR [Concomitant]
  8. DARVOCET [Concomitant]

REACTIONS (10)
  - Pulmonary embolism [Recovered/Resolved]
  - Thrombosis [None]
  - Deep vein thrombosis [None]
  - Abdominal pain [None]
  - Pain [Recovered/Resolved]
  - Emotional distress [None]
  - General physical health deterioration [Recovered/Resolved]
  - Anxiety [None]
  - Pain [None]
  - Injury [Recovered/Resolved]
